FAERS Safety Report 9239238 (Version 1)
Quarter: 2013Q2

REPORT INFORMATION
  Report Type: Spontaneous
  Country: CH (occurrence: CH)
  Receive Date: 20130418
  Receipt Date: 20130418
  Transmission Date: 20140414
  Serious: Yes (Hospitalization)
  Sender: FDA-Public Use
  Company Number: PHHY2013CH036620

PATIENT
  Age: 87 Year
  Sex: Female
  Weight: 60 kg

DRUGS (7)
  1. FENTANYL SANDOZ [Suspect]
     Indication: BACK PAIN
     Dosage: 1.25 UG, DAILY
     Route: 062
     Dates: start: 20130108
  2. FENTANYL SANDOZ [Suspect]
     Dosage: 0.5 DF
     Route: 062
     Dates: end: 20130109
  3. LISITRIL [Suspect]
     Indication: MYOCARDIAL ISCHAEMIA
     Dosage: 10 MG, DAILY
     Route: 048
  4. ZESTRIL [Suspect]
     Indication: MYOCARDIAL ISCHAEMIA
     Dosage: 10 MG, DAILY
     Route: 048
     Dates: start: 20130107
  5. MARCOUMAR [Concomitant]
     Dosage: 1 DF, PRN
     Route: 048
     Dates: start: 19950118
  6. ALENDRONATE [Concomitant]
     Dosage: 70 MG
     Route: 048
     Dates: start: 20080226
  7. CHONDROSULF [Concomitant]
     Dosage: 800 MG, QD
     Route: 048
     Dates: start: 19990505

REACTIONS (7)
  - Cervical vertebral fracture [Not Recovered/Not Resolved]
  - Concussion [Recovered/Resolved]
  - Fracture [Recovered/Resolved]
  - Fall [Not Recovered/Not Resolved]
  - Decreased appetite [Recovered/Resolved]
  - Malaise [Recovered/Resolved]
  - Asthenia [Recovered/Resolved]
